FAERS Safety Report 18111401 (Version 1)
Quarter: 2020Q3

REPORT INFORMATION
  Report Type: Spontaneous
  Country: US (occurrence: US)
  Receive Date: 20200805
  Receipt Date: 20200805
  Transmission Date: 20201103
  Serious: No
  Sender: FDA-Public Use
  Company Number: US-BION-008821

PATIENT
  Age: 53 Year
  Sex: Male
  Weight: 120.2 kg

DRUGS (3)
  1. SOTALOL APOTX CORP. [Concomitant]
     Indication: SINUS RHYTHM
     Dosage: 80MG TABLET BY MOUTH TWICE A DAY
     Dates: start: 20200611, end: 20200618
  2. FLECAINIDE ACETATE ROXANE LABS [Concomitant]
     Indication: SINUS RHYTHM
     Dosage: 100MG TABLET BY MOUTH TWICE A DAY
  3. BIONPHARMA^S DOFETILIDE 60 CT [Suspect]
     Active Substance: DOFETILIDE
     Indication: SINUS RHYTHM
     Dosage: 500MCG CAPSULE BY MOUTH TWICE A DAY
     Route: 048

REACTIONS (2)
  - Product substitution issue [Unknown]
  - Adverse event [Unknown]
